FAERS Safety Report 12912661 (Version 3)
Quarter: 2017Q1

REPORT INFORMATION
  Report Type: Spontaneous
  Country: IT (occurrence: IT)
  Receive Date: 20161104
  Receipt Date: 20170103
  Transmission Date: 20170428
  Serious: Yes (Disabling)
  Sender: FDA-Public Use
  Company Number: IT-BAYER-2016-208233

PATIENT
  Age: 45 Year
  Sex: Male
  Weight: 63 kg

DRUGS (1)
  1. CIPROXIN 500 MG [Suspect]
     Active Substance: CIPROFLOXACIN
     Indication: PROSTATITIS ESCHERICHIA COLI
     Dosage: DAILY DOSE 500 MG
     Route: 048
     Dates: start: 20160709, end: 20160709

REACTIONS (6)
  - Gait disturbance [Not Recovered/Not Resolved]
  - Bursitis [Not Recovered/Not Resolved]
  - Plantar fasciitis [Not Recovered/Not Resolved]
  - Oedema peripheral [Not Recovered/Not Resolved]
  - Tendon disorder [Not Recovered/Not Resolved]
  - Pain [Not Recovered/Not Resolved]

NARRATIVE: CASE EVENT DATE: 20160709
